FAERS Safety Report 9189348 (Version 1)
Quarter: 2013Q1

REPORT INFORMATION
  Report Type: Spontaneous
  Country: US (occurrence: None)
  Receive Date: 20130322
  Receipt Date: 20130322
  Transmission Date: 20140127
  Serious: Yes (Other)
  Sender: FDA-Public Use
  Company Number: US-DEXPHARM-20130102

PATIENT
  Age: 86 Year
  Sex: Male
  Weight: 81.63 kg

DRUGS (1)
  1. OMEPRAZOLE [Suspect]
     Indication: PROPHYLAXIS
     Route: 048
     Dates: start: 20130223

REACTIONS (3)
  - Dysphagia [None]
  - Rhinorrhoea [None]
  - Product quality issue [None]
